FAERS Safety Report 18651384 (Version 1)
Quarter: 2020Q4

REPORT INFORMATION
  Report Type: Report from Study
  Country: ES (occurrence: ES)
  Receive Date: 20201222
  Receipt Date: 20201222
  Transmission Date: 20210114
  Serious: Yes (Death, Hospitalization, Other)
  Sender: FDA-Public Use
  Company Number: ES-MYLANLABS-2020M1103748

PATIENT
  Age: 64 Year
  Sex: Male
  Weight: 75 kg

DRUGS (28)
  1. UPTRAVI [Suspect]
     Active Substance: SELEXIPAG
     Dosage: 400 MICROGRAM, QD
     Route: 048
     Dates: start: 20200923
  2. UPTRAVI [Suspect]
     Active Substance: SELEXIPAG
     Dosage: 1600 MICROGRAM, QD
     Route: 048
     Dates: start: 20200204, end: 20200302
  3. UPTRAVI [Suspect]
     Active Substance: SELEXIPAG
     Indication: PULMONARY ARTERIAL HYPERTENSION
     Dosage: 800 MICROGRAM, QD
     Route: 048
     Dates: start: 20200909, end: 20200922
  4. UPTRAVI [Suspect]
     Active Substance: SELEXIPAG
     Dosage: 1200 MICROGRAM
     Route: 048
     Dates: start: 20200108, end: 20200203
  5. UPTRAVI [Suspect]
     Active Substance: SELEXIPAG
     Dosage: 2000 MICROGRAM, QD
     Route: 048
     Dates: start: 20200817, end: 20200821
  6. UPTRAVI [Suspect]
     Active Substance: SELEXIPAG
     Dosage: 2400 MICROGRAM, QD
     Route: 048
     Dates: start: 20200812, end: 20200816
  7. UPTRAVI [Suspect]
     Active Substance: SELEXIPAG
     Dosage: 800 MICROGRAM, QD
     Route: 048
     Dates: start: 20191219, end: 20200107
  8. UPTRAVI [Suspect]
     Active Substance: SELEXIPAG
     Dosage: 400 MICROGRAM, QD
     Route: 048
     Dates: start: 20191210, end: 20191218
  9. OMEPRAZOL                          /00661201/ [Concomitant]
     Active Substance: OMEPRAZOLE
     Indication: GASTRITIS
     Dosage: UNK
     Route: 048
     Dates: start: 20150715
  10. VENTAVIS [Concomitant]
     Active Substance: ILOPROST
     Dosage: 50 MICROGRAM, QD
     Route: 055
     Dates: start: 20190430, end: 20191222
  11. UPTRAVI [Suspect]
     Active Substance: SELEXIPAG
     Dosage: 2000 MICROGRAM, QD
     Route: 048
     Dates: start: 20200303, end: 20200506
  12. UPTRAVI [Suspect]
     Active Substance: SELEXIPAG
     Dosage: 2800 MICROGRAM, QD
     Route: 048
     Dates: start: 20200715, end: 20200811
  13. TEOFILINA [Concomitant]
     Indication: EMPHYSEMA
     Dosage: UNK
     Route: 048
     Dates: start: 20050503
  14. ALOPURINOL [Concomitant]
     Active Substance: ALLOPURINOL
     Indication: HYPERURICAEMIA
     Dosage: UNK
     Route: 048
     Dates: start: 20100118
  15. BISOPROLOL [Concomitant]
     Active Substance: BISOPROLOL
     Indication: PULMONARY HYPERTENSION
     Dosage: UNK
     Route: 048
     Dates: start: 20200612
  16. UPTRAVI [Suspect]
     Active Substance: SELEXIPAG
     Dosage: 1200 MICROGRAM, QD
     Route: 048
     Dates: start: 20200830, end: 20200908
  17. SILDENAFIL. [Suspect]
     Active Substance: SILDENAFIL
     Dosage: 1 DOSAGE FORM, QD
     Route: 048
     Dates: start: 20200824, end: 20200923
  18. ENOXAPARINA DE SODIO [Concomitant]
     Indication: PULMONARY HYPERTENSION
     Dosage: UNK
     Route: 058
     Dates: start: 20190502
  19. ADCIRCA [Concomitant]
     Active Substance: TADALAFIL
     Indication: PULMONARY ARTERIAL HYPERTENSION
     Dosage: UNK
     Route: 048
     Dates: start: 20200612
  20. SILDENAFIL. [Suspect]
     Active Substance: SILDENAFIL
     Indication: PULMONARY ARTERIAL HYPERTENSION
     Dosage: 60 MG, QD
     Route: 048
     Dates: start: 20190430, end: 20200612
  21. UPTRAVI [Suspect]
     Active Substance: SELEXIPAG
     Dosage: 1600 MICROGRAM, QD
     Route: 048
     Dates: start: 20200822, end: 20200829
  22. UPTRAVI [Suspect]
     Active Substance: SELEXIPAG
     Dosage: 2400 MICROGRAM, QD
     Route: 048
     Dates: start: 20200507, end: 20200714
  23. FUROSEMIDA                         /00032601/ [Concomitant]
     Active Substance: FUROSEMIDE
     Indication: PULMONARY HYPERTENSION
     Dosage: UNK
     Route: 048
     Dates: start: 20190430
  24. SPIROLACTONA [Concomitant]
     Indication: PULMONARY HYPERTENSION
     Dosage: UNK
     Dates: start: 20200612
  25. OPSUMIT [Suspect]
     Active Substance: MACITENTAN
     Indication: PULMONARY ARTERIAL HYPERTENSION
     Dosage: 10 MG, QD
     Route: 048
     Dates: start: 20190430, end: 20200923
  26. BUDESONIDA [Concomitant]
     Active Substance: BUDESONIDE
     Indication: EMPHYSEMA
     Dosage: UNK
     Route: 055
     Dates: start: 20050503
  27. IPRATROPIO BROMURO [Concomitant]
     Active Substance: IPRATROPIUM BROMIDE
     Indication: EMPHYSEMA
     Dosage: UNK
     Route: 055
     Dates: start: 20050503
  28. VENTAVIS [Concomitant]
     Active Substance: ILOPROST
     Indication: PULMONARY ARTERIAL HYPERTENSION
     Dosage: 40 MCG, QD
     Route: 055
     Dates: start: 20191223, end: 20200612

REACTIONS (8)
  - Respiratory depression [Recovered/Resolved]
  - Dyspnoea exertional [Recovered/Resolved]
  - Tachycardia [Recovered/Resolved]
  - Lung diffusion test decreased [Unknown]
  - Respiratory tract infection [Recovered/Resolved with Sequelae]
  - Renal impairment [Unknown]
  - Pulmonary arterial hypertension [Fatal]
  - Catheterisation cardiac [Unknown]

NARRATIVE: CASE EVENT DATE: 20190519
